FAERS Safety Report 6185090-0 (Version None)
Quarter: 2009Q2

REPORT INFORMATION
  Report Type: 
  Country: None (occurrence: None)
  Receive Date: 20090511
  Receipt Date: 20090504
  Transmission Date: 20091009
  Serious: Yes (Hospitalization, Other)
  Sender: FDA-Public Use
  Company Number: US-JNJFOC-20090303694

PATIENT
  Sex: Female
  Weight: 73.03 kg

DRUGS (21)
  1. TOPAMAX [Suspect]
     Route: 048
  2. TOPAMAX [Suspect]
     Indication: MIGRAINE PROPHYLAXIS
     Route: 048
  3. FLUTICASONE [Concomitant]
  4. BUSPIRONE HCL [Concomitant]
  5. EPITOL [Concomitant]
  6. FLUOXETINE HCL [Concomitant]
  7. NASACORT [Concomitant]
  8. LEVOTHYROXINE SODIUM [Concomitant]
     Route: 048
  9. FLUOXETINE HCL [Concomitant]
     Route: 048
  10. AMITRIPTLINE HYDROCHLORIDE TAB [Concomitant]
     Dosage: 3 TABLETS FOR EVERY HOUR OF SLEEP
  11. AMITRIPTLINE HYDROCHLORIDE TAB [Concomitant]
  12. FROVA [Concomitant]
     Dosage: AS NEEDED
     Route: 048
  13. MAGNESIUM OXIDE [Concomitant]
     Route: 048
  14. NABUMETONE [Concomitant]
  15. NEXIUM [Concomitant]
     Route: 048
  16. SINGULAIR [Concomitant]
     Route: 048
  17. VITAMIN D [Concomitant]
     Route: 048
  18. PREDNISONE [Concomitant]
  19. IBUPROPHEN [Concomitant]
  20. HYDROCO/APAPS [Concomitant]
     Dosage: (PRN) AS NEEDED
     Route: 048
  21. PROMETHAZINE HCL [Concomitant]
     Dosage: (PRN) AS NEEDED
     Route: 048

REACTIONS (13)
  - AMNESIA [None]
  - ANAEMIA [None]
  - ANXIETY [None]
  - CARDIAC DISORDER [None]
  - CARDIOVASCULAR DISORDER [None]
  - COGNITIVE DISORDER [None]
  - DYSPNOEA [None]
  - GOUT [None]
  - IMPAIRED DRIVING ABILITY [None]
  - NEUROMA [None]
  - OSTEOARTHRITIS [None]
  - PERIARTHRITIS [None]
  - TREMOR [None]
